FAERS Safety Report 16744105 (Version 2)
Quarter: 2019Q3

REPORT INFORMATION
  Report Type: Report from Study
  Country: None (occurrence: CH)
  Receive Date: 20190827
  Receipt Date: 20190918
  Transmission Date: 20191005
  Serious: Yes (Hospitalization, Other)
  Sender: FDA-Public Use
  Company Number: CH-ABBVIE-19K-151-2902236-00

PATIENT
  Sex: Male

DRUGS (3)
  1. DUODOPA [Suspect]
     Active Substance: CARBIDOPA\LEVODOPA
     Dosage: MORNING DOSE: 5 ML;??CONTINUOUS RATE DAY: 2.8 ML/H;??EXTRA DOSE: 0.8 ML
     Route: 050
     Dates: start: 20181228, end: 20190318
  2. DUODOPA [Suspect]
     Active Substance: CARBIDOPA\LEVODOPA
     Dosage: MORNING DOSE: 4 ML;??CONTINUOUS RATE DAY: 2.6 ML/H;??EXTRA DOSE: 0.8 ML
     Route: 050
     Dates: start: 20190318
  3. DUODOPA [Suspect]
     Active Substance: CARBIDOPA\LEVODOPA
     Indication: PARKINSON^S DISEASE
     Route: 050
     Dates: start: 20141030, end: 20181228

REACTIONS (2)
  - Joint dislocation [Unknown]
  - Device issue [Unknown]
